FAERS Safety Report 7287237-1 (Version None)
Quarter: 2011Q1

REPORT INFORMATION
  Report Type: 
  Country: None (occurrence: None)
  Receive Date: 20110211
  Receipt Date: 20101217
  Transmission Date: 20110831
  Serious: Yes (Hospitalization)
  Sender: FDA-Public Use
  Company Number: US-BAYER-201012197NA

PATIENT
  Sex: Female
  Weight: 104.55 kg

DRUGS (9)
  1. YASMIN [Suspect]
     Indication: ORAL CONTRACEPTION
     Route: 048
     Dates: start: 20010101, end: 20020101
  2. YAZ [Suspect]
     Indication: ORAL CONTRACEPTION
     Route: 048
     Dates: start: 20030101, end: 20050615
  3. ALBUTEROL [Concomitant]
  4. SINGULAIR [Concomitant]
  5. METHYLDOPA [Concomitant]
  6. ORAL CONTRACEPTIVE NOS [Concomitant]
     Route: 048
     Dates: start: 19880101, end: 20010101
  7. ADVAIR [Concomitant]
  8. ALEVE [Concomitant]
  9. SKELAXIN [Concomitant]

REACTIONS (14)
  - FATIGUE [None]
  - GASTRITIS [None]
  - CHOLELITHIASIS [None]
  - CHOLECYSTITIS ACUTE [None]
  - NAUSEA [None]
  - ORGAN FAILURE [None]
  - PAIN [None]
  - SYNCOPE [None]
  - ASTHENIA [None]
  - BILE DUCT STONE [None]
  - ABDOMINAL PAIN UPPER [None]
  - VOMITING [None]
  - DIARRHOEA [None]
  - CONTUSION [None]
